FAERS Safety Report 15899743 (Version 8)
Quarter: 2019Q3

REPORT INFORMATION
  Report Type: Spontaneous
  Country: US (occurrence: US)
  Receive Date: 20190201
  Receipt Date: 20190926
  Transmission Date: 20191004
  Serious: Yes (Other)
  Sender: FDA-Public Use
  Company Number: US-PFIZER INC-2018385526

PATIENT
  Age: 54 Year
  Sex: Male
  Weight: 57 kg

DRUGS (6)
  1. NICOTROL [Suspect]
     Active Substance: NICOTINE
     Dosage: UNK, (3-4 TIMES AN HOUR)
  2. NICOTROL [Suspect]
     Active Substance: NICOTINE
     Indication: SMOKING CESSATION THERAPY
     Dosage: 10MG, NOT EVER EXCEED 85 OF THE DOSE PER DAY, 2-3 TIMES EVERY 2 HOURS
     Route: 045
     Dates: start: 2018, end: 201812
  3. NICOTROL [Suspect]
     Active Substance: NICOTINE
     Indication: CHRONIC OBSTRUCTIVE PULMONARY DISEASE
     Dosage: 10 MG, UNK (10MG, ADMINISTERED NASALLY 4-5 TIMES DAILY)
     Route: 045
     Dates: start: 2017
  4. NICOTROL [Suspect]
     Active Substance: NICOTINE
     Indication: BRONCHITIS
     Dosage: 2 DF, UNK (1 SPRAY IN EACH NOSTRIL 1-5X/HR X8 WEEK)(MAX 80 SPRAYS/DAY)
     Route: 045
     Dates: start: 20181219
  5. NICOTROL [Suspect]
     Active Substance: NICOTINE
     Indication: SMOKING CESSATION THERAPY
     Dosage: UNK (TAPER DOSE OVER 4-6WK)
     Route: 045
  6. NICOTROL [Suspect]
     Active Substance: NICOTINE
     Dosage: 10 MG/ML, 1 SPRAY BY NASAL ROUTE 1 TIME PER DAY UP TO 5 TIMES PER HOUR
     Route: 045

REACTIONS (6)
  - Emphysema [Not Recovered/Not Resolved]
  - Onycholysis [Not Recovered/Not Resolved]
  - Malaise [Not Recovered/Not Resolved]
  - Anxiety [Unknown]
  - Panic attack [Unknown]
  - Condition aggravated [Not Recovered/Not Resolved]

NARRATIVE: CASE EVENT DATE: 201801
